FAERS Safety Report 8310462-5 (Version None)
Quarter: 2012Q2

REPORT INFORMATION
  Report Type: 
  Country: None (occurrence: None)
  Receive Date: 20120425
  Receipt Date: 20120423
  Transmission Date: 20120825
  Serious: Yes (Hospitalization)
  Sender: FDA-Public Use
  Company Number: FR-ROCHE-1015816

PATIENT
  Sex: Male

DRUGS (9)
  1. PREDNISOLONE [Suspect]
     Indication: NON-HODGKIN'S LYMPHOMA
     Dosage: DAY1 TO DAY 5
     Route: 048
     Dates: end: 20110520
  2. PROCORALAN [Suspect]
     Indication: MYOCARDIAL ISCHAEMIA
     Route: 048
     Dates: end: 20110611
  3. OMEPRAZOLE [Suspect]
     Indication: PRODUCT USED FOR UNKNOWN INDICATION
     Route: 048
     Dates: start: 20110101, end: 20110520
  4. SIMVASTATIN [Concomitant]
     Indication: HYPERCHOLESTEROLAEMIA
     Route: 048
  5. PREVISCAN (FRANCE) [Concomitant]
     Indication: ATRIAL FIBRILLATION
     Route: 048
  6. MABTHERA [Suspect]
     Indication: NON-HODGKIN'S LYMPHOMA
     Route: 042
     Dates: start: 20110101, end: 20110520
  7. HYDROCHLOROTHIAZIDE [Suspect]
     Indication: HYPERTENSION
     Route: 048
     Dates: end: 20110611
  8. ETOPOSIDE [Suspect]
     Indication: NON-HODGKIN'S LYMPHOMA
     Route: 048
     Dates: start: 20110101, end: 20110520
  9. CYCLOPHOSPHAMIDE [Suspect]
     Indication: NON-HODGKIN'S LYMPHOMA
     Route: 048
     Dates: start: 20110101, end: 20110520

REACTIONS (2)
  - LUNG DISORDER [None]
  - PULMONARY FIBROSIS [None]
